FAERS Safety Report 14692206 (Version 6)
Quarter: 2018Q4

REPORT INFORMATION
  Report Type: Report from Study
  Country: IT (occurrence: IT)
  Receive Date: 20180329
  Receipt Date: 20181127
  Transmission Date: 20190204
  Serious: Yes (Hospitalization, Other)
  Sender: FDA-Public Use
  Company Number: IT-ROCHE-2098252

PATIENT
  Age: 59 Year
  Sex: Male

DRUGS (23)
  1. CANRENONE [Concomitant]
     Active Substance: CANRENONE
     Dosage: INDICATION: ISHCEMIC CARDIOMYOPATHY
     Route: 048
     Dates: start: 201802
  2. HUMAN INSULIN [Concomitant]
     Active Substance: INSULIN HUMAN
     Indication: TYPE 2 DIABETES MELLITUS
     Dosage: AS NEEDED?START DATE: DEC/XX (YEAR UNSPECIFIED)
     Route: 058
  3. DIDROGYL [Concomitant]
     Active Substance: CALCIFEDIOL
     Indication: VITAMIN D DEFICIENCY
     Dosage: UNIT DOSE: 20 [DRP]
     Route: 048
     Dates: start: 2016
  4. LAEVOLAC [Concomitant]
     Active Substance: LACTULOSE
     Route: 065
  5. OKI [Concomitant]
     Active Substance: KETOPROFEN LYSINE
     Route: 065
  6. DIBASE [Concomitant]
     Active Substance: CHOLECALCIFEROL
     Indication: VITAMIN D DEFICIENCY
     Dosage: UNIT DOSE: 3 [DRP]
     Route: 065
     Dates: start: 2016
  7. OXIBUTININA [Concomitant]
     Active Substance: OXYBUTYNIN
     Route: 048
     Dates: start: 2015
  8. METFORMIN [Concomitant]
     Active Substance: METFORMIN HYDROCHLORIDE
     Indication: TYPE 2 DIABETES MELLITUS
     Route: 048
     Dates: start: 201802
  9. CLOPIDOGREL [Concomitant]
     Active Substance: CLOPIDOGREL BISULFATE
     Indication: ACUTE MYOCARDIAL INFARCTION
     Dosage: INDICATION: SCA-STEMI (ST-ELEVATION MYOCARDIAL INFARCTION)
     Route: 048
     Dates: start: 201802
  10. BACLOFEN. [Concomitant]
     Active Substance: BACLOFEN
     Indication: MUSCLE SPASTICITY
     Dosage: 2.5 PER ONE DAY?1+HALF+1/DAY
     Route: 048
     Dates: start: 2011
  11. ASA [Concomitant]
     Active Substance: ASPIRIN
     Indication: ACUTE MYOCARDIAL INFARCTION
     Dosage: INDICATION: SCA-STEMI (ST-ELEVATION MYOCARDIAL INFARCTION)
     Route: 048
     Dates: start: 201802
  12. DULOXETINE. [Concomitant]
     Active Substance: DULOXETINE
     Indication: PAIN
  13. ROCEFIN [Concomitant]
     Active Substance: CEFTRIAXONE SODIUM
     Route: 065
  14. CIPROXIN [Concomitant]
     Active Substance: CIPROFLOXACIN
     Route: 065
  15. ATENOLOL. [Concomitant]
     Active Substance: ATENOLOL
     Indication: ISCHAEMIC CARDIOMYOPATHY
     Route: 048
     Dates: start: 201802
  16. HUMALOG [Concomitant]
     Active Substance: INSULIN LISPRO
     Indication: TYPE 2 DIABETES MELLITUS
     Route: 058
     Dates: start: 20180109
  17. FUROSEMIDE. [Concomitant]
     Active Substance: FUROSEMIDE
     Indication: ISCHAEMIC CARDIOMYOPATHY
     Route: 048
     Dates: start: 201102
  18. KCL [Concomitant]
     Active Substance: POTASSIUM CHLORIDE
     Route: 065
  19. PRAMIPEXOLE. [Concomitant]
     Active Substance: PRAMIPEXOLE
     Indication: RESTLESS LEGS SYNDROME
     Route: 048
     Dates: start: 2011
  20. OCRELIZUMAB. [Suspect]
     Active Substance: OCRELIZUMAB
     Indication: PRIMARY PROGRESSIVE MULTIPLE SCLEROSIS
     Route: 042
     Dates: start: 20171207
  21. ARIXTRA [Concomitant]
     Active Substance: FONDAPARINUX SODIUM
     Route: 065
  22. DULOXETINE. [Concomitant]
     Active Substance: DULOXETINE
     Indication: DEPRESSION
     Route: 048
     Dates: start: 201802
  23. DEURSIL [Concomitant]
     Active Substance: URSODIOL
     Indication: GALLBLADDER DISORDER
     Route: 048
     Dates: start: 201802

REACTIONS (5)
  - Ischaemic stroke [Unknown]
  - Subileus [Unknown]
  - Chest pain [Unknown]
  - Cholelithiasis [Unknown]
  - Troponin increased [Unknown]

NARRATIVE: CASE EVENT DATE: 20180108
